FAERS Safety Report 20811081 (Version 1)
Quarter: 2022Q2

REPORT INFORMATION
  Report Type: Spontaneous
  Country: US (occurrence: US)
  Receive Date: 20220510
  Receipt Date: 20220510
  Transmission Date: 20220720
  Serious: Yes (Hospitalization)
  Sender: FDA-Public Use
  Company Number: US-BRISTOL-MYERS SQUIBB COMPANY-2022-031729

PATIENT
  Age: 82 Year
  Sex: Female

DRUGS (2)
  1. POMALYST [Suspect]
     Active Substance: POMALIDOMIDE
     Indication: Plasma cell myeloma
     Route: 048
     Dates: start: 20210809
  2. NINLARO [Concomitant]
     Active Substance: IXAZOMIB CITRATE
     Dosage: FREQUENCY: DAYS 1, 8 AND 15

REACTIONS (2)
  - Joint stiffness [Unknown]
  - Muscle tightness [Unknown]
